FAERS Safety Report 11832661 (Version 1)
Quarter: 2015Q4

REPORT INFORMATION
  Report Type: Spontaneous
  Country: US (occurrence: US)
  Receive Date: 20151214
  Receipt Date: 20151214
  Transmission Date: 20160305
  Serious: No
  Sender: FDA-Public Use
  Company Number: US-AKRON, INC.-1045449

PATIENT
  Age: 74 Year
  Sex: Female
  Weight: 58.18 kg

DRUGS (1)
  1. DORZOLAMIDE HCL TIMOLOL MALEATE OPHTHALMIC SOLUTION [Suspect]
     Active Substance: DORZOLAMIDE HYDROCHLORIDE\TIMOLOL MALEATE
     Indication: GLAUCOMA

REACTIONS (5)
  - Ocular hyperaemia [Recovered/Resolved]
  - Blister [Recovering/Resolving]
  - Eyelid skin dryness [Unknown]
  - Eye pruritus [Recovered/Resolved]
  - Eye swelling [Recovered/Resolved]
